FAERS Safety Report 5659293-5 (Version None)
Quarter: 2008Q1

REPORT INFORMATION
  Report Type: 
  Country: None (occurrence: None)
  Receive Date: 20080311
  Receipt Date: 20070710
  Transmission Date: 20080703
  Serious: Yes (Other)
  Sender: FDA-Public Use
  Company Number: US-BAYER-200712193BCC

PATIENT
  Sex: Male

DRUGS (7)
  1. ALEVE [Suspect]
     Indication: DRUG USE FOR UNKNOWN INDICATION
     Route: 048
  2. REMICADE [Suspect]
     Indication: PSORIASIS
     Route: 042
  3. REMICADE [Suspect]
     Route: 042
     Dates: start: 20070606
  4. REMICADE [Suspect]
     Route: 042
     Dates: start: 20070620
  5. BENADRYL [Concomitant]
     Indication: PREMEDICATION
     Dates: start: 20070520
  6. SOLU-CORTEF [Concomitant]
     Indication: PREMEDICATION
  7. TYLENOL (CAPLET) [Concomitant]
     Indication: PREMEDICATION

REACTIONS (2)
  - CHOKING SENSATION [None]
  - URTICARIA [None]
